FAERS Safety Report 17074562 (Version 2)
Quarter: 2019Q4

REPORT INFORMATION
  Report Type: Spontaneous
  Country: JP (occurrence: JP)
  Receive Date: 20191126
  Receipt Date: 20191223
  Transmission Date: 20200122
  Serious: Yes (Death, Life-Threatening, Hospitalization)
  Sender: FDA-Public Use
  Company Number: JP-EISAI MEDICAL RESEARCH-EC-2019-065911

PATIENT
  Sex: Female

DRUGS (1)
  1. HALAVEN [Suspect]
     Active Substance: ERIBULIN MESYLATE
     Indication: TRIPLE NEGATIVE BREAST CANCER
     Route: 041
     Dates: start: 20191118

REACTIONS (2)
  - Depressed level of consciousness [Fatal]
  - Decreased appetite [Fatal]

NARRATIVE: CASE EVENT DATE: 201911
